FAERS Safety Report 8376370-9 (Version None)
Quarter: 2012Q1

REPORT INFORMATION
  Report Type: 
  Country: None (occurrence: None)
  Receive Date: 20120323
  Receipt Date: 20110429
  Transmission Date: 20120608
  Serious: Yes (Hospitalization)
  Sender: FDA-Public Use
  Company Number: 163-21880-11050127

PATIENT
  Age: 75 Year
  Sex: Male
  Weight: 87.1 kg

DRUGS (3)
  1. REVLIMID [Suspect]
     Indication: MULTIPLE MYELOMA
     Dosage: 5 MG, 1 IN 1 D, PO
     Route: 048
     Dates: start: 20110304
  2. THALOMID [Suspect]
     Indication: MULTIPLE MYELOMA
     Dosage: 100 MG, PO, 100 MG, PO
     Route: 048
     Dates: start: 20100810, end: 20101005
  3. THALOMID [Suspect]
     Indication: MULTIPLE MYELOMA
     Dosage: 100 MG, PO, 100 MG, PO
     Route: 048
     Dates: start: 20100117

REACTIONS (3)
  - NERVE INJURY [None]
  - PANCREATITIS [None]
  - PNEUMONIA [None]
